FAERS Safety Report 4407333-3 (Version None)
Quarter: 2004Q3

REPORT INFORMATION
  Report Type: 
  Country: None (occurrence: None)
  Receive Date: 20040721
  Receipt Date: 20040707
  Transmission Date: 20050211
  Serious: Yes (Hospitalization, Disabling, Other)
  Sender: FDA-Public Use
  Company Number: US_0407104127

PATIENT
  Age: 53 Year
  Sex: Female

DRUGS (4)
  1. PERMAX [Suspect]
     Indication: PARKINSON'S DISEASE
  2. ELDEPRYL [Concomitant]
  3. SINEMET [Concomitant]
  4. PREMARIN [Concomitant]

REACTIONS (17)
  - ANTIPHOSPHOLIPID ANTIBODIES POSITIVE [None]
  - ARTERIOGRAM ABNORMAL [None]
  - BLINDNESS UNILATERAL [None]
  - BLOOD CHOLESTEROL INCREASED [None]
  - BLOOD HOMOCYSTEINE INCREASED [None]
  - BLOOD IMMUNOGLOBULIN G INCREASED [None]
  - BLOOD IMMUNOGLOBULIN M INCREASED [None]
  - FEMORAL ARTERY OCCLUSION [None]
  - FIBROMUSCULAR DYSPLASIA [None]
  - INTERMITTENT CLAUDICATION [None]
  - LEG AMPUTATION [None]
  - LOW DENSITY LIPOPROTEIN INCREASED [None]
  - PERIPHERAL ISCHAEMIA [None]
  - POST PROCEDURAL COMPLICATION [None]
  - SUBCLAVIAN ARTERY STENOSIS [None]
  - VASCULAR BYPASS GRAFT [None]
  - VASCULAR OPERATION [None]
